FAERS Safety Report 20193788 (Version 1)
Quarter: 2021Q4

REPORT INFORMATION
  Report Type: Spontaneous
  Country: US (occurrence: US)
  Receive Date: 20211216
  Receipt Date: 20211216
  Transmission Date: 20220304
  Serious: No
  Sender: FDA-Public Use
  Company Number: US-SA-SAC20211210000105

PATIENT
  Age: 68 Year
  Sex: Female

DRUGS (17)
  1. DUPIXENT [Suspect]
     Active Substance: DUPILUMAB
     Indication: Dermatitis
     Dosage: 300 MG, QOW
     Route: 058
     Dates: start: 20210928
  2. ANORO ELLIPTA [Concomitant]
     Active Substance: UMECLIDINIUM BROMIDE\VILANTEROL TRIFENATATE
  3. CLOBETASOL [Concomitant]
     Active Substance: CLOBETASOL
  4. FENOFIBRATE [Concomitant]
     Active Substance: FENOFIBRATE
  5. FLUTICASONE [Concomitant]
     Active Substance: FLUTICASONE
  6. HETLIOZ [Concomitant]
     Active Substance: TASIMELTEON
  7. JARDIANCE [Concomitant]
     Active Substance: EMPAGLIFLOZIN
  8. LOSARTAN [Concomitant]
     Active Substance: LOSARTAN
  9. METFORMIN [Concomitant]
     Active Substance: METFORMIN HYDROCHLORIDE
  10. OMEPRAZOLE [Concomitant]
     Active Substance: OMEPRAZOLE
  11. PRAVASTATIN [Concomitant]
     Active Substance: PRAVASTATIN
  12. TOBRAMYCIN [Concomitant]
     Active Substance: TOBRAMYCIN
  13. TOLTERODINE [Concomitant]
     Active Substance: TOLTERODINE
  14. ACYCLOVIR [Concomitant]
     Active Substance: ACYCLOVIR
  15. OZEMPIC [Concomitant]
     Active Substance: SEMAGLUTIDE
  16. ALLOPURINOL [Concomitant]
     Active Substance: ALLOPURINOL
  17. ICOSAPENT [Concomitant]
     Active Substance: ICOSAPENT

REACTIONS (3)
  - Dermatitis [Recovering/Resolving]
  - Pruritus [Recovering/Resolving]
  - Product use in unapproved indication [Unknown]

NARRATIVE: CASE EVENT DATE: 20210928
